FAERS Safety Report 9744547 (Version 1)
Quarter: 2013Q4

REPORT INFORMATION
  Report Type: Spontaneous
  Country: HR (occurrence: HR)
  Receive Date: 20131210
  Receipt Date: 20131210
  Transmission Date: 20140711
  Serious: Yes (Other)
  Sender: FDA-Public Use
  Company Number: HR-TEVA-447844ISR

PATIENT
  Age: 64 Year
  Sex: Female
  Weight: 65 kg

DRUGS (3)
  1. TIAREN [Suspect]
     Indication: CORONARY ARTERIAL STENT INSERTION
     Dosage: 2 DOSAGE FORMS DAILY;
     Route: 048
     Dates: start: 201310
  2. LETROX 50 [Concomitant]
     Indication: HYPOTHYROIDISM
     Dosage: 50 MILLIGRAM DAILY;
     Route: 048
     Dates: start: 2012
  3. LOSARTIC [Concomitant]
     Indication: HYPERTENSION
     Dosage: 100 MILLIGRAM DAILY;
     Route: 048

REACTIONS (4)
  - Petechiae [Not Recovered/Not Resolved]
  - Erythema [Not Recovered/Not Resolved]
  - Erythema [Not Recovered/Not Resolved]
  - Tooth socket haemorrhage [Not Recovered/Not Resolved]
